FAERS Safety Report 18752002 (Version 2)
Quarter: 2021Q1

REPORT INFORMATION
  Report Type: Spontaneous
  Country: KR (occurrence: KR)
  Receive Date: 20210118
  Receipt Date: 20210128
  Transmission Date: 20210419
  Serious: Yes (Hospitalization, Other)
  Sender: FDA-Public Use
  Company Number: KR-BAXTER-2021BAX000880

PATIENT
  Age: 14 Year
  Sex: Female

DRUGS (1)
  1. DOXIL [Suspect]
     Active Substance: DOXORUBICIN HYDROCHLORIDE
     Indication: OSTEOSARCOMA
     Dosage: CYCLICAL
     Route: 065

REACTIONS (4)
  - Cardiac ventricular thrombosis [Recovered/Resolved]
  - Myocardial infarction [Recovering/Resolving]
  - Cardiomyopathy [Recovering/Resolving]
  - Ischaemic stroke [Recovering/Resolving]
